FAERS Safety Report 6746667-4 (Version None)
Quarter: 2010Q2

REPORT INFORMATION
  Report Type: 
  Country: None (occurrence: None)
  Receive Date: 20100528
  Receipt Date: 20100521
  Transmission Date: 20101027
  Serious: Yes (Other)
  Sender: FDA-Public Use
  Company Number: IT-PFIZER INC-2010060351

PATIENT
  Age: 58 Year
  Sex: Male

DRUGS (4)
  1. NORVASC [Suspect]
     Indication: HYPERTENSION
     Dosage: 5 MG, 1X/DAY
  2. BACTRIM [Suspect]
     Indication: PROSTATIC SPECIFIC ANTIGEN INCREASED
     Dosage: 10 MG, 1X/DAY
  3. ENAPREN [Suspect]
     Indication: HYPERTENSION
     Dosage: 20 MG, 1X/DAY
  4. PERMIXON [Suspect]
     Indication: PROSTATIC SPECIFIC ANTIGEN INCREASED
     Dosage: 320 MG, 1X/DAY
     Dates: end: 20100430

REACTIONS (5)
  - DIZZINESS [None]
  - NAUSEA [None]
  - PROSTATIC SPECIFIC ANTIGEN INCREASED [None]
  - VERTIGO [None]
  - VOMITING [None]
